FAERS Safety Report 9390400 (Version 1)
Quarter: 2013Q3

REPORT INFORMATION
  Report Type: Spontaneous
  Country: US (occurrence: None)
  Receive Date: 20130701
  Receipt Date: 20130701
  Transmission Date: 20140515
  Serious: Yes (Death, Hospitalization)
  Sender: FDA-Public Use
  Company Number: 2013US001806

PATIENT
  Age: 81 Year
  Sex: Male
  Weight: 74 kg

DRUGS (1)
  1. ICLUSIG [Suspect]
     Indication: CHRONIC MYELOID LEUKAEMIA
     Route: 048
     Dates: start: 20130518, end: 20130607

REACTIONS (9)
  - Septic shock [None]
  - Renal failure [None]
  - Hepatic failure [None]
  - Hypertension [None]
  - Confusional state [None]
  - Dehydration [None]
  - Pyrexia [None]
  - Diarrhoea [None]
  - Constipation [None]
